FAERS Safety Report 12854886 (Version 3)
Quarter: 2017Q1

REPORT INFORMATION
  Report Type: Spontaneous
  Country: US (occurrence: US)
  Receive Date: 20161017
  Receipt Date: 20170109
  Transmission Date: 20170428
  Serious: Yes (Other)
  Sender: FDA-Public Use
  Company Number: US-BAYER-2016-198883

PATIENT
  Sex: Female

DRUGS (29)
  1. AVELOX [Suspect]
     Active Substance: MOXIFLOXACIN HYDROCHLORIDE
     Dosage: UNK
     Dates: start: 20090415, end: 20090429
  2. LEVAQUIN [Suspect]
     Active Substance: LEVOFLOXACIN
     Indication: APPENDICITIS
     Dosage: 750 MG, QD
     Dates: start: 20070726, end: 20070731
  3. LEVOTHYROXINE. [Concomitant]
     Active Substance: LEVOTHYROXINE
     Indication: THYROID DISORDER
     Dosage: UNK UNK, QD
  4. ZOFRAN [Concomitant]
     Active Substance: ONDANSETRON HYDROCHLORIDE
     Indication: NAUSEA
     Dosage: UNK UNK, PRN
  5. ZOFRAN [Concomitant]
     Active Substance: ONDANSETRON HYDROCHLORIDE
     Indication: MIGRAINE
  6. MECLIZINE [Concomitant]
     Active Substance: MECLIZINE HYDROCHLORIDE
     Indication: VERTIGO
  7. TOPIRAMATE. [Concomitant]
     Active Substance: TOPIRAMATE
     Dosage: 75 MG, BEDTIME
  8. CIPROFLOXACIN. [Suspect]
     Active Substance: CIPROFLOXACIN
     Dosage: 500 MG, BID
     Dates: start: 20080418, end: 20080428
  9. CLONAZEPAM. [Concomitant]
     Active Substance: CLONAZEPAM
     Indication: ANXIETY
     Dosage: 0.5 MG, BID
  10. ALEVE [Concomitant]
     Active Substance: NAPROXEN SODIUM
     Indication: ANALGESIC THERAPY
     Dosage: UNK UNK, PRN
  11. XANAX [Concomitant]
     Active Substance: ALPRAZOLAM
     Indication: ANXIETY
     Dosage: UNK
     Dates: start: 20111104
  12. CRESTOR [Concomitant]
     Active Substance: ROSUVASTATIN CALCIUM
     Indication: BLOOD CHOLESTEROL
     Dosage: UNK
     Dates: start: 20110214, end: 20130512
  13. AVELOX [Suspect]
     Active Substance: MOXIFLOXACIN HYDROCHLORIDE
     Dosage: 400 MG, QD
     Dates: start: 20070927, end: 20071007
  14. MUCINEX DM [Concomitant]
     Active Substance: DEXTROMETHORPHAN HYDROBROMIDE\GUAIFENESIN
     Indication: PARANASAL SINUS DISCOMFORT
     Dosage: UNK UNK, PRN
  15. ASPIRIN. [Concomitant]
     Active Substance: ASPIRIN
     Indication: CHEST PAIN
     Dosage: 81 MG, QD
     Dates: start: 20111104, end: 20130419
  16. VICODIN [Concomitant]
     Active Substance: ACETAMINOPHEN\HYDROCODONE BITARTRATE
     Indication: PAIN
     Dosage: UNK
     Dates: start: 20100512
  17. TOPIRAMATE. [Concomitant]
     Active Substance: TOPIRAMATE
     Dosage: 100 MG, UNK
  18. METOPROLOL. [Concomitant]
     Active Substance: METOPROLOL
     Indication: HYPERTENSION
     Dosage: UNK UNK, QD
  19. MECLIZINE [Concomitant]
     Active Substance: MECLIZINE HYDROCHLORIDE
     Indication: NAUSEA
  20. LEVOFLOXACIN. [Suspect]
     Active Substance: LEVOFLOXACIN
     Dosage: 500 MG, QD
     Dates: start: 20130522, end: 20130602
  21. LEVAQUIN [Suspect]
     Active Substance: LEVOFLOXACIN
     Indication: APPENDICITIS
     Dosage: UNK
     Dates: start: 20090401, end: 20090406
  22. CIPROFLOXACIN. [Suspect]
     Active Substance: CIPROFLOXACIN
     Dosage: UNK
     Dates: start: 20070220, end: 20070227
  23. SUMATRIPTAN. [Concomitant]
     Active Substance: SUMATRIPTAN
     Indication: MIGRAINE
     Dosage: UNK UNK, PRN
  24. TRIAMCINOLONE [Concomitant]
     Active Substance: TRIAMCINOLONE
     Indication: PAIN
     Dosage: UNK
     Dates: start: 20110923, end: 20121116
  25. LEVAQUIN [Suspect]
     Active Substance: LEVOFLOXACIN
     Indication: APPENDICITIS
     Dosage: UNK
     Dates: start: 20100512, end: 20100519
  26. CYCLOBENZAPRINE [Concomitant]
     Active Substance: CYCLOBENZAPRINE
     Indication: PAIN
     Dosage: UNK
     Dates: start: 20100612
  27. IMITREX [Concomitant]
     Active Substance: SUMATRIPTAN SUCCINATE
     Indication: HEADACHE
     Dosage: UNK
  28. LEVAQUIN [Suspect]
     Active Substance: LEVOFLOXACIN
     Indication: APPENDICITIS
     Dosage: UNK
     Dates: start: 20100311, end: 20100318
  29. TUMS EX [Concomitant]
     Active Substance: CALCIUM CARBONATE
     Indication: DYSPEPSIA
     Dosage: UNK UNK, PRN

REACTIONS (7)
  - Panic attack [None]
  - Musculoskeletal injury [None]
  - Nervous system disorder [None]
  - Neuropathy peripheral [Not Recovered/Not Resolved]
  - Anxiety [None]
  - Cardiovascular disorder [None]
  - Mental disorder [None]

NARRATIVE: CASE EVENT DATE: 200709
